FAERS Safety Report 9732887 (Version 1)
Quarter: 2013Q4

REPORT INFORMATION
  Report Type: Spontaneous
  Country: US (occurrence: US)
  Receive Date: 20131205
  Receipt Date: 20131205
  Transmission Date: 20140711
  Serious: Yes (Hospitalization)
  Sender: FDA-Public Use
  Company Number: US-ALLERGAN-1318942US

PATIENT
  Sex: Female

DRUGS (2)
  1. BOTOX [Suspect]
     Indication: SALIVARY HYPERSECRETION
     Dosage: 50 UNITS, SINGLE
  2. BOTOX [Suspect]
     Dosage: 70 UNITS, SINGLE

REACTIONS (5)
  - Dehydration [Unknown]
  - Oesophageal disorder [Unknown]
  - Dysarthria [Unknown]
  - Dysphagia [Unknown]
  - Off label use [Unknown]
